FAERS Safety Report 8007571-7 (Version None)
Quarter: 2011Q4

REPORT INFORMATION
  Report Type: 
  Country: None (occurrence: None)
  Receive Date: 20111227
  Receipt Date: 20111214
  Transmission Date: 20120403
  Serious: Yes (Hospitalization)
  Sender: FDA-Public Use
  Company Number: PL-UCBSA-047893

PATIENT
  Age: 56 Year
  Sex: Female

DRUGS (5)
  1. SABRIL [Concomitant]
  2. DEPAKENE [Concomitant]
     Dosage: TREATED FOR 23 MONTHS
  3. LAMOTRIGINE [Concomitant]
  4. KEPPRA [Suspect]
     Dosage: TREATED FOR 23 MONTHS
  5. TEGRETOL [Concomitant]

REACTIONS (2)
  - ANXIETY [None]
  - CLUSTER HEADACHE [None]
